FAERS Safety Report 19702976 (Version 1)
Quarter: 2021Q3

REPORT INFORMATION
  Report Type: Spontaneous
  Country: DE (occurrence: DE)
  Receive Date: 20210816
  Receipt Date: 20210816
  Transmission Date: 20211014
  Serious: Yes (Other)
  Sender: FDA-Public Use
  Company Number: DE-AUROBINDO-AUR-APL-2021-034431

PATIENT
  Age: 74 Year
  Sex: Male

DRUGS (3)
  1. RASAGILINE. [Suspect]
     Active Substance: RASAGILINE
     Indication: PARKINSON^S DISEASE
     Dosage: 1 MILLIGRAM
     Route: 065
  2. PRAMIPEXOLE. [Suspect]
     Active Substance: PRAMIPEXOLE
     Indication: PARKINSON^S DISEASE
     Dosage: 1.52 MILLIGRAM
     Route: 065
  3. LEVODOPA [Suspect]
     Active Substance: LEVODOPA
     Indication: PARKINSON^S DISEASE
     Dosage: 600 MILLIGRAM
     Route: 065

REACTIONS (4)
  - Drug withdrawal syndrome [Unknown]
  - Listless [Unknown]
  - Depressed mood [Unknown]
  - Impulse-control disorder [Recovering/Resolving]
